FAERS Safety Report 21144320 (Version 1)
Quarter: 2022Q3

REPORT INFORMATION
  Report Type: Spontaneous
  Country: US (occurrence: None)
  Receive Date: 20220728
  Receipt Date: 20220728
  Transmission Date: 20221027
  Serious: Yes (Disabling)
  Sender: FDA-Public Use
  Company Number: None

PATIENT
  Age: 66 Year
  Sex: Female
  Weight: 45 kg

DRUGS (10)
  1. PAXLOVID [Suspect]
     Active Substance: NIRMATRELVIR\RITONAVIR
     Dosage: OTHER QUANTITY : 2 TABLET(S);?FREQUENCY : EVERY 12 HOURS;?
     Route: 048
     Dates: start: 20220719, end: 20220723
  2. LOVASTATIN [Concomitant]
     Active Substance: LOVASTATIN
  3. FLUTICASONE [Concomitant]
     Active Substance: FLUTICASONE
  4. FAMOTIDINE [Concomitant]
     Active Substance: FAMOTIDINE
  5. LOSARTAN POTASSIUM [Concomitant]
  6. LEVOTHYROXINE [Concomitant]
     Active Substance: LEVOTHYROXINE
  7. topical Triamcinolone cream [Concomitant]
  8. Multivitamin gummies [Concomitant]
  9. OASIS TEARS PLUS [Concomitant]
     Active Substance: GLYCERIN
  10. Refresh Liquigel and Muro [Concomitant]

REACTIONS (4)
  - Rhinorrhoea [None]
  - Sneezing [None]
  - Oropharyngeal pain [None]
  - SARS-CoV-2 test positive [None]

NARRATIVE: CASE EVENT DATE: 20220728
